FAERS Safety Report 7674846-0 (Version None)
Quarter: 2011Q3

REPORT INFORMATION
  Report Type: 
  Country: None (occurrence: None)
  Receive Date: 20110810
  Receipt Date: 20110711
  Transmission Date: 20111222
  Serious: No
  Sender: FDA-Public Use
  Company Number: US-BAYER-2011-060274

PATIENT
  Age: 52 Year
  Sex: Female

DRUGS (4)
  1. AVELOX [Suspect]
     Indication: INFECTION
     Dosage: 400 MG, QD
     Route: 048
     Dates: start: 20110501, end: 20110501
  2. ALBUTEROL SULFATE AUTOHALER [Concomitant]
  3. ADVAIR DISKUS 100/50 [Concomitant]
  4. BROVANA [Concomitant]
     Indication: COUGH
     Dosage: 15 ?G, PRN
     Dates: end: 20110401

REACTIONS (1)
  - RASH PRURITIC [None]
